FAERS Safety Report 22527926 (Version 1)
Quarter: 2023Q2

REPORT INFORMATION
  Report Type: Report from Study
  Country: MX (occurrence: MX)
  Receive Date: 20230606
  Receipt Date: 20230606
  Transmission Date: 20230721
  Serious: Yes (Other)
  Sender: FDA-Public Use
  Company Number: MX-002147023-NVSC2023MX127561

PATIENT
  Sex: Female
  Weight: 87 kg

DRUGS (5)
  1. HYDROCHLOROTHIAZIDE\VALSARTAN [Suspect]
     Active Substance: HYDROCHLOROTHIAZIDE\VALSARTAN
     Indication: Blood pressure abnormal
     Dosage: 1 DOSAGE FORM (BY MOUTH)
     Route: 048
     Dates: start: 2000
  2. METOPROLOL [Suspect]
     Active Substance: METOPROLOL
     Indication: Product used for unknown indication
     Dosage: UNK
     Route: 065
  3. AMLODIPINE [Concomitant]
     Active Substance: AMLODIPINE BESYLATE
     Indication: Product used for unknown indication
     Dosage: UNK
     Route: 065
  4. BISOPROLOL FUMARATE [Concomitant]
     Active Substance: BISOPROLOL FUMARATE
     Indication: Blood pressure abnormal
     Dosage: 0.5 DOSAGE FORM BID, (BY MOUTH)
     Route: 048
     Dates: start: 2020
  5. PLENDIL [Concomitant]
     Active Substance: FELODIPINE
     Indication: Blood pressure abnormal
     Dosage: 1 DOSAGE FORM BID, (BY MOUTH), (STARTED APPROXIMATELY 3 YEARS AGO)
     Route: 048

REACTIONS (3)
  - Hypertension [Unknown]
  - Malaise [Unknown]
  - Inappropriate schedule of product administration [Unknown]
